FAERS Safety Report 13170323 (Version 4)
Quarter: 2017Q2

REPORT INFORMATION
  Report Type: Spontaneous
  Country: JP (occurrence: JP)
  Receive Date: 20170131
  Receipt Date: 20170412
  Transmission Date: 20170830
  Serious: Yes (Death, Life-Threatening, Hospitalization)
  Sender: FDA-Public Use
  Company Number: PHJP2017JP003605

PATIENT
  Age: 75 Year
  Sex: Male
  Weight: 53 kg

DRUGS (4)
  1. AFINITOR [Suspect]
     Active Substance: EVEROLIMUS
     Indication: CARCINOID TUMOUR
     Dosage: 10 MG, QD
     Route: 048
     Dates: start: 20161104, end: 20161212
  2. SENNOSIDE [Concomitant]
     Active Substance: SENNOSIDES
     Indication: CONSTIPATION
     Dosage: 24 MG, QD
     Route: 048
     Dates: start: 20160205, end: 20161228
  3. JUZENTAIHOTO [Concomitant]
     Indication: ANAEMIA
     Dosage: 2.5 G, BID
     Route: 048
     Dates: start: 20160205, end: 20161228
  4. NEXIUM [Concomitant]
     Active Substance: ESOMEPRAZOLE MAGNESIUM
     Indication: ULCER
     Dosage: 20 MG, QD
     Route: 048
     Dates: start: 20160205, end: 20161228

REACTIONS (10)
  - Carcinoid tumour [Fatal]
  - Hepatic function abnormal [Not Recovered/Not Resolved]
  - Aspartate aminotransferase increased [Not Recovered/Not Resolved]
  - Interstitial lung disease [Fatal]
  - Alanine aminotransferase increased [Not Recovered/Not Resolved]
  - Product use in unapproved indication [Unknown]
  - Malignant neoplasm progression [Fatal]
  - General physical health deterioration [Unknown]
  - Dyspnoea [Fatal]
  - Computerised tomogram thorax abnormal [Fatal]

NARRATIVE: CASE EVENT DATE: 20161213
